FAERS Safety Report 11754934 (Version 1)
Quarter: 2015Q4

REPORT INFORMATION
  Report Type: Spontaneous
  Country: US (occurrence: None)
  Receive Date: 20151118
  Receipt Date: 20151118
  Transmission Date: 20160304
  Serious: No
  Sender: FDA-Public Use
  Company Number: None

PATIENT
  Age: 84 Year
  Sex: Female
  Weight: 62.6 kg

DRUGS (10)
  1. PROLIA [Suspect]
     Active Substance: DENOSUMAB
     Indication: OSTEOPOROSIS
     Dosage: 1 6 MONTHS INJECTION
     Dates: start: 20150811
  2. MULTIVITAMIN [Concomitant]
     Active Substance: VITAMINS
  3. ACIDOPHILUS [Concomitant]
     Active Substance: LACTOBACILLUS ACIDOPHILUS
  4. LISINOPRIL. [Concomitant]
     Active Substance: LISINOPRIL
  5. D3 [Concomitant]
     Active Substance: 25-HYDROXYCHOLECALCIFEROL, 5-TRANS-
  6. ATORVASTATIN [Concomitant]
     Active Substance: ATORVASTATIN
  7. METOPROLOL TARTRATE. [Concomitant]
     Active Substance: METOPROLOL TARTRATE
  8. GLUCOSAMINE HCI [Concomitant]
  9. CALCIUM W/D [Concomitant]
  10. ASPIRIN. [Concomitant]
     Active Substance: ASPIRIN

REACTIONS (8)
  - Blood pressure increased [None]
  - Muscle spasms [None]
  - Arthralgia [None]
  - Myalgia [None]
  - Headache [None]
  - Lymphadenopathy [None]
  - Influenza like illness [None]
  - Oedema [None]

NARRATIVE: CASE EVENT DATE: 20150815
